FAERS Safety Report 15353529 (Version 2)
Quarter: 2018Q4

REPORT INFORMATION
  Report Type: Not Available
  Country: US (occurrence: US)
  Receive Date: 20180905
  Receipt Date: 20181213
  Transmission Date: 20190204
  Serious: Yes (Death, Hospitalization)
  Sender: FDA-Public Use
  Company Number: US-NEUROCRINE BIOSCIENCES INC.-2018NBI02634

PATIENT
  Sex: Male

DRUGS (3)
  1. INGREZZA [Suspect]
     Active Substance: VALBENAZINE
     Indication: TARDIVE DYSKINESIA
     Route: 048
  2. INGREZZA [Suspect]
     Active Substance: VALBENAZINE
     Route: 048
  3. RISPERDAL [Concomitant]
     Active Substance: RISPERIDONE

REACTIONS (2)
  - Death [Fatal]
  - Condition aggravated [Unknown]

NARRATIVE: CASE EVENT DATE: 2018
